FAERS Safety Report 9800389 (Version 3)
Quarter: 2014Q2

REPORT INFORMATION
  Report Type: Spontaneous
  Country: BE (occurrence: BE)
  Receive Date: 20140107
  Receipt Date: 20140404
  Transmission Date: 20141212
  Serious: Yes (Hospitalization)
  Sender: FDA-Public Use
  Company Number: BE-AMGEN-BELSP2013090336

PATIENT
  Age: 53 Year
  Sex: Female

DRUGS (1)
  1. MIMPARA [Suspect]
     Indication: HYPERPARATHYROIDISM
     Dosage: 90 MG, QD
     Route: 065

REACTIONS (3)
  - Paraparesis [Recovering/Resolving]
  - Hyperkalaemia [Recovering/Resolving]
  - Hypocalcaemia [Recovered/Resolved]
